FAERS Safety Report 7355907-2 (Version None)
Quarter: 2011Q1

REPORT INFORMATION
  Report Type: 
  Country: None (occurrence: None)
  Receive Date: 20110316
  Receipt Date: 20110303
  Transmission Date: 20110831
  Serious: Yes (Hospitalization)
  Sender: FDA-Public Use
  Company Number: US-VIROPHARMA INCORPORATED-20110124CINRY1782

PATIENT
  Sex: Female

DRUGS (3)
  1. FLONASE [Concomitant]
     Indication: RHINITIS
  2. CINRYZE [Suspect]
     Indication: HEREDITARY ANGIOEDEMA
     Dates: start: 20110110
  3. VICODIN [Concomitant]
     Indication: ABDOMINAL PAIN
     Route: 048

REACTIONS (20)
  - HAEMATOCRIT DECREASED [None]
  - NAUSEA [None]
  - ACTIVATED PARTIAL THROMBOPLASTIN TIME PROLONGED [None]
  - SYSTEMIC LUPUS ERYTHEMATOSUS [None]
  - ALPHA 2 GLOBULIN INCREASED [None]
  - PLEURAL EFFUSION [None]
  - HAEMOGLOBIN DECREASED [None]
  - UPPER RESPIRATORY TRACT INFECTION [None]
  - RED BLOOD CELL COUNT DECREASED [None]
  - ALPHA 1 GLOBULIN INCREASED [None]
  - ALBUMIN GLOBULIN RATIO DECREASED [None]
  - VOMITING [None]
  - PROTEIN TOTAL DECREASED [None]
  - BETA GLOBULIN DECREASED [None]
  - COMPLEMENT FACTOR C4 DECREASED [None]
  - PNEUMONIA [None]
  - ANTIPHOSPHOLIPID ANTIBODIES POSITIVE [None]
  - BLOOD ALBUMIN DECREASED [None]
  - IMMUNOGLOBULINS DECREASED [None]
  - RUSSELL'S VIPER VENOM TIME ABNORMAL [None]
